FAERS Safety Report 12984449 (Version 1)
Quarter: 2016Q4

REPORT INFORMATION
  Report Type: Spontaneous
  Country: DE (occurrence: DE)
  Receive Date: 20161129
  Receipt Date: 20161129
  Transmission Date: 20170207
  Serious: Yes (Hospitalization)
  Sender: FDA-Public Use
  Company Number: DE-ELI_LILLY_AND_COMPANY-DE201611007574

PATIENT
  Age: 27 Year
  Sex: Male
  Weight: 81 kg

DRUGS (1)
  1. ZYPREXA [Suspect]
     Active Substance: OLANZAPINE
     Indication: PRODUCT USED FOR UNKNOWN INDICATION
     Dosage: 15 MG, QD
     Route: 048
     Dates: start: 20140915

REACTIONS (6)
  - Suspiciousness [Unknown]
  - Suicide attempt [Unknown]
  - Stab wound [Unknown]
  - Weight increased [Not Recovered/Not Resolved]
  - Psychotic disorder [Unknown]
  - Increased appetite [Unknown]

NARRATIVE: CASE EVENT DATE: 20150921
